FAERS Safety Report 13252773 (Version 3)
Quarter: 2018Q4

REPORT INFORMATION
  Report Type: Spontaneous
  Country: US (occurrence: US)
  Receive Date: 20170220
  Receipt Date: 20181027
  Transmission Date: 20190204
  Serious: Yes (Hospitalization, Disabling, Other)
  Sender: FDA-Public Use
  Company Number: US-009507513-1702USA007852

PATIENT
  Sex: Female
  Weight: 90.7 kg

DRUGS (1)
  1. NUVARING [Suspect]
     Active Substance: ETHINYL ESTRADIOL\ETONOGESTREL
     Indication: CONTRACEPTION
     Dosage: 0.12 MG/0.015 MG, AS DIRECTED
     Route: 067
     Dates: start: 201202, end: 20150224

REACTIONS (26)
  - Headache [Not Recovered/Not Resolved]
  - Vaginal haemorrhage [Unknown]
  - Subarachnoid haemorrhage [Unknown]
  - Cerebral venous thrombosis [Unknown]
  - Swelling [Unknown]
  - Back injury [Unknown]
  - Paraesthesia [Not Recovered/Not Resolved]
  - Hypoaesthesia [Not Recovered/Not Resolved]
  - Pulmonary embolism [Unknown]
  - Muscle strain [Not Recovered/Not Resolved]
  - Nasopharyngitis [Unknown]
  - Somnolence [Unknown]
  - Back injury [Unknown]
  - Dysmenorrhoea [Unknown]
  - Scoliosis [Unknown]
  - Uterine leiomyoma [Unknown]
  - Iron deficiency anaemia [Not Recovered/Not Resolved]
  - Chlamydial infection [Unknown]
  - Burning sensation [Not Recovered/Not Resolved]
  - Phonophobia [Unknown]
  - Migraine [Unknown]
  - Muscle spasms [Not Recovered/Not Resolved]
  - Pain in extremity [Not Recovered/Not Resolved]
  - Surgery [Unknown]
  - Arthralgia [Not Recovered/Not Resolved]
  - Menstrual disorder [Unknown]

NARRATIVE: CASE EVENT DATE: 20120803
